FAERS Safety Report 8790980 (Version 1)
Quarter: 2012Q4

REPORT INFORMATION
  Report Type: Spontaneous
  Country: US (occurrence: None)
  Receive Date: 20120910
  Receipt Date: 20120910
  Transmission Date: 20130627
  Serious: Yes (Other)
  Sender: FDA-Public Use
  Company Number: DSU-2012-06941

PATIENT
  Age: 89 Year
  Sex: Female
  Weight: 56.7 kg

DRUGS (5)
  1. AZOR [Suspect]
     Indication: HYPERTENSION
     Dosage: 10/40 mg (QD), Per oral
     Route: 048
  2. LIPITOR (ATORVASTATIN CALCIUM) (ATORVASTATIN CALCIUM) [Concomitant]
  3. TOPROL (METOPROLOL SUCCINATE) (METOPROLOL SUCCINATE) [Concomitant]
  4. HYDROXYUREA (HYDROXYCARBAMIDE) (HYDROXYCARBAMIDE) [Concomitant]
  5. ASPIRIN (ACETYLSALICYLIC ACID) (ACETYLSALICYLIC ACID) [Concomitant]

REACTIONS (1)
  - Skin cancer [None]
